FAERS Safety Report 25101067 (Version 1)
Quarter: 2025Q1

REPORT INFORMATION
  Report Type: Spontaneous
  Country: US (occurrence: US)
  Receive Date: 20250320
  Receipt Date: 20250320
  Transmission Date: 20250408
  Serious: No
  Sender: SMITH AND NEPHEW
  Company Number: US-SMITH AND NEPHEW, INC-2024SMT00037

PATIENT
  Sex: Female

DRUGS (2)
  1. COLLAGENASE SANTYL [Suspect]
     Active Substance: COLLAGENASE CLOSTRIDIUM HISTOLYTICUM
     Indication: Wound
     Route: 061
     Dates: start: 202406
  2. CALCIUM ALGINATE [Concomitant]
     Active Substance: CALCIUM ALGINATE

REACTIONS (4)
  - Application site haemorrhage [Not Recovered/Not Resolved]
  - Application site pain [Not Recovered/Not Resolved]
  - Eschar [Not Recovered/Not Resolved]
  - Skin ulcer [Not Recovered/Not Resolved]

NARRATIVE: CASE EVENT DATE: 20240601
